FAERS Safety Report 13017200 (Version 2)
Quarter: 2017Q1

REPORT INFORMATION
  Report Type: Spontaneous
  Country: GB (occurrence: GB)
  Receive Date: 20161212
  Receipt Date: 20170116
  Transmission Date: 20170428
  Serious: Yes (Other)
  Sender: FDA-Public Use
  Company Number: GB-JNJFOC-20161130341

PATIENT
  Age: 59 Year
  Sex: Female
  Weight: 76.2 kg

DRUGS (3)
  1. PARACETAMOL [Suspect]
     Active Substance: ACETAMINOPHEN
     Indication: MUSCULOSKELETAL PAIN
     Route: 065
  2. COCODAMOL [Suspect]
     Active Substance: ACETAMINOPHEN\CODEINE PHOSPHATE
     Indication: PERIARTHRITIS
     Dosage: 30/500 MG, 5 PILLS WITHIN 18 HOURS
     Route: 065
     Dates: start: 20161117
  3. PARACETAMOL [Suspect]
     Active Substance: ACETAMINOPHEN
     Route: 065

REACTIONS (10)
  - Restlessness [Not Recovered/Not Resolved]
  - Chest discomfort [Unknown]
  - Abdominal rigidity [Unknown]
  - Nausea [Recovering/Resolving]
  - Dizziness [Unknown]
  - Dyspepsia [Unknown]
  - Somnolence [Unknown]
  - Abdominal pain upper [Not Recovered/Not Resolved]
  - Thirst [Unknown]
  - Vomiting [Unknown]

NARRATIVE: CASE EVENT DATE: 20161118
